FAERS Safety Report 5696276-3 (Version None)
Quarter: 2008Q2

REPORT INFORMATION
  Report Type: 
  Country: None (occurrence: None)
  Receive Date: 20080407
  Receipt Date: 20080326
  Transmission Date: 20081010
  Serious: Yes (Hospitalization, Other)
  Sender: FDA-Public Use
  Company Number: JP-PFIZER INC-2008021895

PATIENT
  Sex: Female

DRUGS (1)
  1. CELECOX [Suspect]
     Indication: BACK PAIN
     Route: 048
     Dates: start: 20080212, end: 20080304

REACTIONS (8)
  - ALTERED STATE OF CONSCIOUSNESS [None]
  - FALL [None]
  - HEADACHE [None]
  - HYPERTENSION [None]
  - NAUSEA [None]
  - POLYARTHRITIS [None]
  - PYREXIA [None]
  - VOMITING [None]
